FAERS Safety Report 13831788 (Version 1)
Quarter: 2017Q3

REPORT INFORMATION
  Report Type: Spontaneous
  Country: US (occurrence: US)
  Receive Date: 20170803
  Receipt Date: 20170803
  Transmission Date: 20171127
  Serious: No
  Sender: FDA-Public Use
  Company Number: US-ROCHE-649608

PATIENT
  Age: 84 Year
  Sex: Male

DRUGS (10)
  1. BONIVA [Suspect]
     Active Substance: IBANDRONATE SODIUM
     Indication: OSTEOPOROSIS
     Route: 048
     Dates: start: 200905, end: 200911
  2. ATENOLOL. [Concomitant]
     Active Substance: ATENOLOL
     Route: 065
  3. COZAAR [Concomitant]
     Active Substance: LOSARTAN POTASSIUM
     Route: 065
  4. ASPIRIN. [Concomitant]
     Active Substance: ASPIRIN
     Route: 065
  5. PLAVIX [Concomitant]
     Active Substance: CLOPIDOGREL BISULFATE
     Route: 065
  6. LIPITOR [Concomitant]
     Active Substance: ATORVASTATIN CALCIUM
     Route: 065
  7. AZOPT [Concomitant]
     Active Substance: BRINZOLAMIDE
     Route: 065
  8. NORVASC [Concomitant]
     Active Substance: AMLODIPINE BESYLATE
     Route: 065
  9. CALCIUM [Concomitant]
     Active Substance: CALCIUM
     Route: 065
  10. PEPCID [Concomitant]
     Active Substance: FAMOTIDINE
     Route: 065

REACTIONS (4)
  - Wheezing [Not Recovered/Not Resolved]
  - Poor quality sleep [Not Recovered/Not Resolved]
  - Dysgeusia [Not Recovered/Not Resolved]
  - Ageusia [Not Recovered/Not Resolved]

NARRATIVE: CASE EVENT DATE: 20090630
